FAERS Safety Report 6854451-6 (Version None)
Quarter: 2010Q3

REPORT INFORMATION
  Report Type: 
  Country: None (occurrence: None)
  Receive Date: 20100717
  Receipt Date: 20080103
  Transmission Date: 20110219
  Serious: No
  Sender: FDA-Public Use
  Company Number: US-PFIZER INC-2008003206

PATIENT
  Sex: Female
  Weight: 63.6 kg

DRUGS (2)
  1. CHANTIX [Suspect]
     Indication: SMOKING CESSATION THERAPY
     Dates: start: 20071227
  2. INDERAL [Concomitant]
     Indication: HYPERTENSION

REACTIONS (2)
  - CONSTIPATION [None]
  - FAECES DISCOLOURED [None]
